FAERS Safety Report 9254791 (Version 2)
Quarter: 2013Q2

REPORT INFORMATION
  Report Type: Spontaneous
  Country: US (occurrence: US)
  Receive Date: 20130425
  Receipt Date: 20130531
  Transmission Date: 20140414
  Serious: No
  Sender: FDA-Public Use
  Company Number: US-TEVA-399551USA

PATIENT
  Sex: Female
  Weight: 61.29 kg

DRUGS (6)
  1. NUVIGIL [Suspect]
     Indication: NARCOLEPSY
     Dosage: DAILY
     Route: 048
     Dates: start: 2008
  2. NUVIGIL [Suspect]
     Dosage: DAILY
     Route: 048
  3. NUVIGIL [Suspect]
     Dosage: 50 MILLIGRAM DAILY; DAILY
     Route: 048
     Dates: start: 201302
  4. CELEXA [Concomitant]
     Indication: DEPRESSION
     Dosage: DAILY
  5. CELEXA [Concomitant]
     Indication: ANXIETY
  6. PRENATAL VITAMINS [Concomitant]
     Indication: PREGNANCY
     Dosage: DAILY

REACTIONS (5)
  - Sleep paralysis [Unknown]
  - Neutropenia [Not Recovered/Not Resolved]
  - Somnolence [Not Recovered/Not Resolved]
  - Abnormal dreams [Unknown]
  - Pregnancy [Unknown]
